FAERS Safety Report 15053083 (Version 1)
Quarter: 2018Q2

REPORT INFORMATION
  Report Type: Spontaneous
  Country: FR (occurrence: FR)
  Receive Date: 20180622
  Receipt Date: 20180622
  Transmission Date: 20180711
  Serious: Yes (Hospitalization)
  Sender: FDA-Public Use
  Company Number: FR-PFIZER INC-2018248253

PATIENT
  Age: 63 Year
  Sex: Male
  Weight: 89 kg

DRUGS (5)
  1. BICNU [Suspect]
     Active Substance: CARMUSTINE
     Indication: DIFFUSE LARGE B-CELL LYMPHOMA STAGE II
     Dosage: 300 MG/M2, SINGLE
     Route: 041
     Dates: start: 20150729, end: 20150729
  2. ETOPOSIDE MYLAN [Suspect]
     Active Substance: ETOPOSIDE
     Indication: DIFFUSE LARGE B-CELL LYMPHOMA STAGE II
     Dosage: 200 MG/M2, 1X/DAY
     Route: 041
     Dates: start: 20150730, end: 20150802
  3. CYTARABINE SANDOZ [Suspect]
     Active Substance: CYTARABINE
     Indication: DIFFUSE LARGE B-CELL LYMPHOMA STAGE II
     Dosage: 200 MG/M2, 1X/DAY
     Route: 041
     Dates: start: 20150730, end: 20150802
  4. ALKERAN [Suspect]
     Active Substance: MELPHALAN
     Indication: DIFFUSE LARGE B-CELL LYMPHOMA STAGE II
     Dosage: 140 MG/M2, SINGLE
     Route: 041
     Dates: start: 20150803, end: 20150803
  5. OXALIPLATIN. [Suspect]
     Active Substance: OXALIPLATIN
     Indication: DIFFUSE LARGE B-CELL LYMPHOMA STAGE II
     Dosage: 130 MG/M2, CYCLIC
     Route: 041
     Dates: start: 20150506, end: 20150624

REACTIONS (2)
  - Venoocclusive liver disease [Recovered/Resolved]
  - Product use in unapproved indication [Unknown]

NARRATIVE: CASE EVENT DATE: 20150506
